FAERS Safety Report 7157499-X (Version None)
Quarter: 2010Q4

REPORT INFORMATION
  Report Type: 
  Country: None (occurrence: None)
  Receive Date: 20101130
  Receipt Date: 20101122
  Transmission Date: 20110411
  Serious: Yes (Hospitalization)
  Sender: FDA-Public Use
  Company Number: CIP10002181

PATIENT
  Age: 60 Year
  Sex: Male

DRUGS (3)
  1. ACTONEL [Suspect]
     Dosage: 35 MG, ORAL
     Route: 048
     Dates: start: 20050527, end: 20080101
  2. RABEPRAZOLE SODIUM [Concomitant]
  3. CALCIUM +D (CALCIUM, ERGOCALCIFEROL) [Concomitant]

REACTIONS (4)
  - GINGIVAL ULCERATION [None]
  - JAW DISORDER [None]
  - MOUTH ULCERATION [None]
  - PROSTATE CANCER [None]
